FAERS Safety Report 8505623-6 (Version None)
Quarter: 2012Q3

REPORT INFORMATION
  Report Type: 
  Country: None (occurrence: None)
  Receive Date: 20120703
  Receipt Date: 20120622
  Transmission Date: 20120928
  Serious: Yes (Hospitalization, Other)
  Sender: FDA-Public Use
  Company Number: 2010SP028758

PATIENT
  Age: 62 Year
  Sex: Male

DRUGS (17)
  1. ACYCLOVIR [Concomitant]
  2. FLUCONAZOLE [Concomitant]
  3. DEXAMETHASONE [Concomitant]
  4. FENTANYL [Concomitant]
  5. FUROSEMIDE [Concomitant]
  6. LANSOPRAZOLE [Concomitant]
  7. MELPHALAN HYDROCHLORIDE [Concomitant]
  8. VINCRISTINE [Concomitant]
  9. DEXAMETHASONE [Suspect]
     Indication: MULTIPLE MYELOMA
     Dosage: 160 MG;;PO
     Route: 048
     Dates: start: 20100105, end: 20100226
  10. DOXORUBICIN HCL [Concomitant]
  11. METFORMIN HYDROCHLORIDE [Concomitant]
  12. PIOGLITAZONE [Concomitant]
  13. VELCADE [Suspect]
     Indication: MULTIPLE MYELOMA
     Dosage: 2.5 MG;;IV, 1.3 MG;;IV
     Route: 042
     Dates: start: 20100329, end: 20100329
  14. VELCADE [Suspect]
     Indication: MULTIPLE MYELOMA
     Dosage: 2.5 MG;;IV, 1.3 MG;;IV
     Route: 042
     Dates: start: 20100105
  15. CYCLOPHOSPHAMIDE [Concomitant]
  16. THALIDOMIDE [Concomitant]
  17. GLIMEPIRIDE [Concomitant]

REACTIONS (6)
  - FATIGUE [None]
  - ELECTROLYTE IMBALANCE [None]
  - NAUSEA [None]
  - LOWER RESPIRATORY TRACT INFECTION [None]
  - PULMONARY EMBOLISM [None]
  - DIARRHOEA [None]
